FAERS Safety Report 4310821-1 (Version None)
Quarter: 2004Q1

REPORT INFORMATION
  Report Type: 
  Country: None (occurrence: None)
  Receive Date: 20040302
  Receipt Date: 20040223
  Transmission Date: 20041129
  Serious: Yes (Other)
  Sender: FDA-Public Use
  Company Number: 2003CG01640

PATIENT
  Age: 51 Year
  Sex: Female
  Weight: 65 kg

DRUGS (2)
  1. DIPRIVAN [Suspect]
     Dates: start: 20031026, end: 20031026
  2. BETADINE [Suspect]
     Dates: start: 20031026, end: 20031026

REACTIONS (4)
  - ACCIDENTAL EXPOSURE [None]
  - HYPERAESTHESIA [None]
  - LIMB INJURY [None]
  - SKIN NECROSIS [None]
